FAERS Safety Report 6980489-4 (Version None)
Quarter: 2010Q3

REPORT INFORMATION
  Report Type: 
  Country: None (occurrence: None)
  Receive Date: 20100914
  Receipt Date: 20100831
  Transmission Date: 20110219
  Serious: Yes (Hospitalization, Other)
  Sender: FDA-Public Use
  Company Number: PHHY2010DE58555

PATIENT
  Age: 43 Year
  Sex: Male
  Weight: 100 kg

DRUGS (4)
  1. DICLOFENAC [Suspect]
     Indication: PROCEDURAL PAIN
     Dosage: 75 MG, PER DAY
     Route: 048
     Dates: start: 20100807, end: 20100808
  2. ALLOPURINOL [Concomitant]
     Indication: GOUT
  3. CANDESARTAN CILEXETIL [Concomitant]
     Indication: HYPERTENSION
  4. IRBESARTAN [Concomitant]
     Indication: HYPERTENSION

REACTIONS (8)
  - CHOLECYSTITIS [None]
  - CHOLESTASIS [None]
  - GALLBLADDER OEDEMA [None]
  - HEPATIC NECROSIS [None]
  - HEPATIC SIDEROSIS [None]
  - HEPATIC STEATOSIS [None]
  - HEPATITIS [None]
  - JAUNDICE [None]
